FAERS Safety Report 14113211 (Version 1)
Quarter: 2017Q4

REPORT INFORMATION
  Report Type: Spontaneous
  Country: US (occurrence: None)
  Receive Date: 20171021
  Receipt Date: 20171021
  Transmission Date: 20180321
  Serious: Yes (Hospitalization)
  Sender: FDA-Public Use
  Company Number: None

PATIENT
  Age: 12 Year
  Sex: Male
  Weight: 57.2 kg

DRUGS (8)
  1. ONCASPAR [Suspect]
     Active Substance: PEGASPARGASE
     Dates: end: 20170807
  2. CYTARABINE. [Suspect]
     Active Substance: CYTARABINE
     Dates: end: 20170904
  3. CYCLOPHOSPHAMIDE. [Suspect]
     Active Substance: CYCLOPHOSPHAMIDE
     Dates: end: 20170821
  4. PREDNISONE. [Suspect]
     Active Substance: PREDNISONE
     Dates: end: 20170717
  5. MERCAPTOPURINE. [Suspect]
     Active Substance: MERCAPTOPURINE
     Dates: end: 20171019
  6. METHOTREXATE. [Suspect]
     Active Substance: METHOTREXATE
     Dates: end: 20171010
  7. VINCRISTINE SULFATE. [Suspect]
     Active Substance: VINCRISTINE SULFATE
     Dates: end: 20171010
  8. DAUNORUBICIN [Suspect]
     Active Substance: DAUNORUBICIN
     Dates: end: 20170711

REACTIONS (5)
  - Pancreatitis [None]
  - Pancreatic duct dilatation [None]
  - Bile duct stone [None]
  - Hepatic steatosis [None]
  - Biliary dilatation [None]

NARRATIVE: CASE EVENT DATE: 20171020
